FAERS Safety Report 21058955 (Version 1)
Quarter: 2022Q3

REPORT INFORMATION
  Report Type: Spontaneous
  Country: US (occurrence: US)
  Receive Date: 20220708
  Receipt Date: 20220708
  Transmission Date: 20221026
  Serious: No
  Sender: FDA-Public Use
  Company Number: US-009507513-2207USA002468

PATIENT
  Sex: Male

DRUGS (1)
  1. PRIMAXIN IV [Suspect]
     Active Substance: CILASTATIN SODIUM\IMIPENEM
     Indication: Postoperative wound infection
     Route: 042

REACTIONS (1)
  - Product use in unapproved indication [Unknown]
